FAERS Safety Report 17611890 (Version 2)
Quarter: 2020Q2

REPORT INFORMATION
  Report Type: Spontaneous
  Country: US (occurrence: US)
  Receive Date: 20200401
  Receipt Date: 20200403
  Transmission Date: 20200713
  Serious: No
  Sender: FDA-Public Use
  Company Number: US-BIOGEN-2019BI00821921

PATIENT
  Age: 65 Year
  Sex: Female

DRUGS (6)
  1. OMEGA-3 ACIDS [Concomitant]
     Active Substance: OMEGA-3 FATTY ACIDS
     Route: 065
  2. TECFIDERA [Suspect]
     Active Substance: DIMETHYL FUMARATE
     Dosage: MAINTENANCE DOSE
     Route: 048
     Dates: start: 20180104
  3. TECFIDERA [Suspect]
     Active Substance: DIMETHYL FUMARATE
     Dosage: STARTING DOSE
     Route: 048
     Dates: start: 20171228, end: 20180103
  4. TECFIDERA [Suspect]
     Active Substance: DIMETHYL FUMARATE
     Route: 048
     Dates: start: 2017
  5. AMLODIPINE BESYLATE. [Concomitant]
     Active Substance: AMLODIPINE BESYLATE
     Route: 065
  6. TECFIDERA [Suspect]
     Active Substance: DIMETHYL FUMARATE
     Indication: MULTIPLE SCLEROSIS
     Route: 048

REACTIONS (9)
  - Incontinence [Unknown]
  - Dysstasia [Not Recovered/Not Resolved]
  - Stress [Unknown]
  - Mobility decreased [Recovered/Resolved]
  - Feeling hot [Recovered/Resolved]
  - Product dose omission [Unknown]
  - Urinary incontinence [Not Recovered/Not Resolved]
  - Loss of control of legs [Unknown]
  - Micturition urgency [Unknown]

NARRATIVE: CASE EVENT DATE: 202001
